FAERS Safety Report 11929750 (Version 1)
Quarter: 2016Q1

REPORT INFORMATION
  Report Type: Spontaneous
  Country: US (occurrence: None)
  Receive Date: 20160119
  Receipt Date: 20160119
  Transmission Date: 20160526
  Serious: Yes (Hospitalization)
  Sender: FDA-Public Use
  Company Number: None

PATIENT
  Age: 54 Year
  Sex: Female
  Weight: 131.54 kg

DRUGS (5)
  1. SIMVASTATIN SIMVASTATIN 80 [Suspect]
     Active Substance: SIMVASTATIN
     Indication: BLOOD CHOLESTEROL INCREASED
     Route: 048
     Dates: start: 20150430, end: 20160116
  2. LISINAPRIL [Concomitant]
  3. CYCLOBENZAPRENE [Concomitant]
  4. HYDROCORDONE [Concomitant]
  5. GABAPENTIN. [Concomitant]
     Active Substance: GABAPENTIN

REACTIONS (2)
  - Myalgia [None]
  - Arthralgia [None]

NARRATIVE: CASE EVENT DATE: 20151225
